FAERS Safety Report 4950556-5 (Version None)
Quarter: 2006Q1

REPORT INFORMATION
  Report Type: 
  Country: None (occurrence: None)
  Receive Date: 20060321
  Receipt Date: 20060321
  Transmission Date: 20060701
  Serious: Yes (Hospitalization)
  Sender: FDA-Public Use
  Company Number: None

PATIENT
  Age: 36 Year
  Sex: Male
  Weight: 123.3784 kg

DRUGS (9)
  1. MORPHINE [Suspect]
     Indication: PAIN
     Dosage: 1 MG IV PCA
     Route: 042
     Dates: start: 20051216
  2. DIPHENHYDRAMINE [Suspect]
     Indication: PRURITUS
     Dosage: 25 MG IV CTO
     Route: 042
     Dates: start: 20051216
  3. MORPHINE [Concomitant]
  4. MORPHINE [Concomitant]
  5. DILAUDID [Concomitant]
  6. BENADRYL [Concomitant]
  7. TORADOL [Concomitant]
  8. VERSED [Concomitant]
  9. ROBINUL [Concomitant]

REACTIONS (2)
  - LOSS OF CONSCIOUSNESS [None]
  - OXYGEN SATURATION DECREASED [None]
